FAERS Safety Report 19617434 (Version 1)
Quarter: 2021Q3

REPORT INFORMATION
  Report Type: Spontaneous
  Country: CN (occurrence: CN)
  Receive Date: 20210728
  Receipt Date: 20210728
  Transmission Date: 20211014
  Serious: Yes (Other)
  Sender: FDA-Public Use
  Company Number: CN-ROCHE-2703990

PATIENT

DRUGS (2)
  1. TECENTRIQ [Suspect]
     Active Substance: ATEZOLIZUMAB
     Indication: HEPATIC CANCER RECURRENT
     Route: 065
     Dates: start: 20200912
  2. AVASTIN [Suspect]
     Active Substance: BEVACIZUMAB
     Indication: HEPATIC CANCER RECURRENT
     Route: 065
     Dates: start: 20200912

REACTIONS (4)
  - Malnutrition [Unknown]
  - Thrombocytopenia [Recovering/Resolving]
  - Off label use [Unknown]
  - Multiple organ dysfunction syndrome [Unknown]
